FAERS Safety Report 6742092-0 (Version None)
Quarter: 2010Q2

REPORT INFORMATION
  Report Type: 
  Country: None (occurrence: None)
  Receive Date: 20100526
  Receipt Date: 20100514
  Transmission Date: 20101027
  Serious: Yes (Hospitalization, Other)
  Sender: FDA-Public Use
  Company Number: PHHY2010US31910

PATIENT
  Sex: Male

DRUGS (6)
  1. DIOVAN [Suspect]
     Dosage: 160 MG
     Route: 048
  2. COUMADIN [Concomitant]
     Dosage: UNK
  3. PLAVIX [Concomitant]
  4. IBUPROFEN [Concomitant]
     Dosage: UNK
  5. LASIX [Concomitant]
     Dosage: UNK
  6. PREDNISONE TAB [Concomitant]

REACTIONS (3)
  - DYSPNOEA [None]
  - HYPOTENSION [None]
  - PULMONARY OEDEMA [None]
